FAERS Safety Report 6701799-1 (Version None)
Quarter: 2010Q2

REPORT INFORMATION
  Report Type: 
  Country: None (occurrence: None)
  Receive Date: 20100429
  Receipt Date: 20100427
  Transmission Date: 20101027
  Serious: Yes (Death)
  Sender: FDA-Public Use
  Company Number: PHHY2009PH60903

PATIENT
  Age: 83 Year
  Sex: Female

DRUGS (1)
  1. ACLASTA [Suspect]
     Indication: HIP FRACTURE
     Dosage: 5 MG/100 ML
     Route: 042
     Dates: start: 20080508

REACTIONS (1)
  - PNEUMONIA [None]
